FAERS Safety Report 20367239 (Version 21)
Quarter: 2024Q4

REPORT INFORMATION
  Report Type: Spontaneous
  Country: DE (occurrence: DE)
  Receive Date: 20220123
  Receipt Date: 20241119
  Transmission Date: 20250114
  Serious: Yes (Life-Threatening, Hospitalization, Other)
  Sender: AMGEN
  Company Number: DE-SA-SAC20211230001248

PATIENT
  Age: 69 Year
  Sex: Male
  Weight: 78 kg

DRUGS (83)
  1. CARFILZOMIB [Suspect]
     Active Substance: CARFILZOMIB
     Indication: Plasma cell myeloma refractory
     Dosage: 27 MILLIGRAM, OTHER
     Route: 065
     Dates: start: 20211122, end: 20211122
  2. CARFILZOMIB [Suspect]
     Active Substance: CARFILZOMIB
     Dosage: 74 MILLIGRAM, OTHER
     Route: 065
     Dates: start: 20211122, end: 20211123
  3. CARFILZOMIB [Suspect]
     Active Substance: CARFILZOMIB
     Dosage: 74 MILLIGRAM (OTHER D8, D9, D15, 16)
     Route: 065
     Dates: start: 20211127
  4. CARFILZOMIB [Suspect]
     Active Substance: CARFILZOMIB
     Dosage: 74 MILLIGRAM, OTHER, D8, D9
     Route: 065
     Dates: start: 20211129, end: 20211130
  5. CARFILZOMIB [Suspect]
     Active Substance: CARFILZOMIB
     Dosage: 74 MILLIGRAM, OTHER, D1, D2, D8, D9
     Route: 065
     Dates: start: 20211220, end: 20211221
  6. CARFILZOMIB [Suspect]
     Active Substance: CARFILZOMIB
     Dosage: 74 MILLIGRAM, OTHER, D1, D2, D8, D9
     Route: 065
     Dates: start: 20220125, end: 20220209
  7. CARFILZOMIB [Suspect]
     Active Substance: CARFILZOMIB
     Dosage: 74 MILLIGRAM, OTHER, D1, D2, D8, D9
     Route: 065
     Dates: start: 20220222, end: 20220309
  8. CARFILZOMIB [Suspect]
     Active Substance: CARFILZOMIB
     Dosage: 74 MILLIGRAM, OTHER, D1, D2, D8, D9
     Route: 065
     Dates: start: 20220322, end: 20220406
  9. CARFILZOMIB [Suspect]
     Active Substance: CARFILZOMIB
     Dosage: 74 MILLIGRAM, OTHER, D1, D2, D8, D9
     Route: 065
     Dates: start: 20220419, end: 20220504
  10. CARFILZOMIB [Suspect]
     Active Substance: CARFILZOMIB
     Dosage: 74 MILLIGRAM, OTHER, D1, D2, D8, D9
     Route: 065
     Dates: start: 20220517, end: 20220601
  11. CARFILZOMIB [Suspect]
     Active Substance: CARFILZOMIB
     Dosage: 74 MILLIGRAM, OTHER, D1, D2, D8, D9
     Route: 065
     Dates: start: 20220614, end: 20220629
  12. CARFILZOMIB [Suspect]
     Active Substance: CARFILZOMIB
     Dosage: 74 MILLIGRAM, OTHER, D1, D2, D8, D9
     Route: 065
     Dates: start: 20220712, end: 20220727
  13. CARFILZOMIB [Suspect]
     Active Substance: CARFILZOMIB
     Dosage: 74 MILLIGRAM, OTHER, D1, D2, D8, D9
     Route: 065
     Dates: start: 20220809, end: 20220824
  14. CARFILZOMIB [Suspect]
     Active Substance: CARFILZOMIB
     Dosage: 74 MILLIGRAM (D1, D2, D8, D9)
     Route: 065
     Dates: start: 20220104, end: 20220112
  15. CARFILZOMIB [Suspect]
     Active Substance: CARFILZOMIB
     Dosage: 74 MILLIGRAM, OTHER, D1, D2
     Route: 065
     Dates: start: 20220906, end: 20220907
  16. DEXAMETHASONE [Suspect]
     Active Substance: DEXAMETHASONE
     Indication: Plasma cell myeloma refractory
     Dosage: 20 MG, OTHER, D1, D2
     Route: 065
     Dates: start: 20220906, end: 20220907
  17. DEXAMETHASONE [Suspect]
     Active Substance: DEXAMETHASONE
     Dosage: 20 MG, OTHER, D1, D2, D8, D9
     Route: 065
     Dates: start: 20220322, end: 20220406
  18. DEXAMETHASONE [Suspect]
     Active Substance: DEXAMETHASONE
     Dosage: 20 MG, OTHER, D1, D2, D8, D9
     Route: 065
     Dates: start: 20220125, end: 20220215
  19. DEXAMETHASONE [Suspect]
     Active Substance: DEXAMETHASONE
     Dosage: 20 MG, OTHER, D1, D2, D8, D9
     Route: 065
     Dates: start: 20220614, end: 20220629
  20. DEXAMETHASONE [Suspect]
     Active Substance: DEXAMETHASONE
     Dosage: 20 MG, OTHER, D1, D2, D8, D9
     Route: 065
     Dates: start: 20220712, end: 20220727
  21. DEXAMETHASONE [Suspect]
     Active Substance: DEXAMETHASONE
     Dosage: 20 MG, OTHER, D1, D2, D8, D9
     Route: 065
     Dates: start: 20211220, end: 20211221
  22. DEXAMETHASONE [Suspect]
     Active Substance: DEXAMETHASONE
     Dosage: 20 MG, OTHER, D1, D2, D8, D9
     Route: 065
     Dates: start: 20211122, end: 20211122
  23. DEXAMETHASONE [Suspect]
     Active Substance: DEXAMETHASONE
     Dosage: 20 MG, OTHER, D1, D2, D8, D9
     Route: 065
     Dates: start: 20220517, end: 20220601
  24. DEXAMETHASONE [Suspect]
     Active Substance: DEXAMETHASONE
     Dosage: 20 MG (D8, D9, D15, D16, D22)
     Route: 065
     Dates: start: 20220104, end: 20220118
  25. DEXAMETHASONE [Suspect]
     Active Substance: DEXAMETHASONE
     Dosage: 20 MG, OTHER, D1, D2, D8, D9
     Route: 065
     Dates: start: 20220809, end: 20220824
  26. DEXAMETHASONE [Suspect]
     Active Substance: DEXAMETHASONE
     Dosage: 20 MG, OTHER, D1, D2, D8, D9
     Route: 065
     Dates: start: 20220419, end: 20220504
  27. DEXAMETHASONE [Suspect]
     Active Substance: DEXAMETHASONE
     Dosage: 20 MG, OTHER, D1, D2, D8, D9
     Route: 065
     Dates: start: 20220222, end: 20220309
  28. DEXAMETHASONE [Suspect]
     Active Substance: DEXAMETHASONE
     Dosage: 20 MG (D1, D2, D8, D16, D15, D22, D9)
     Route: 065
     Dates: start: 20211129, end: 20211214
  29. ISATUXIMAB [Suspect]
     Active Substance: ISATUXIMAB
     Indication: Plasma cell myeloma refractory
     Dosage: 680 MG, OTHER
     Route: 040
     Dates: start: 20220222, end: 20220309
  30. ISATUXIMAB [Suspect]
     Active Substance: ISATUXIMAB
     Dosage: 680 MG, BIW
     Route: 040
     Dates: start: 20220322, end: 20220405
  31. ISATUXIMAB [Suspect]
     Active Substance: ISATUXIMAB
     Dosage: 680 MG, OTHER
     Route: 040
     Dates: start: 20220125, end: 20220215
  32. ISATUXIMAB [Suspect]
     Active Substance: ISATUXIMAB
     Dosage: 680 MG, OTHER
     Route: 040
     Dates: start: 20220517, end: 20220601
  33. ISATUXIMAB [Suspect]
     Active Substance: ISATUXIMAB
     Dosage: 680 MG, OTHER
     Route: 040
     Dates: start: 20220906, end: 20220907
  34. ISATUXIMAB [Suspect]
     Active Substance: ISATUXIMAB
     Dosage: 680 MG, QW
     Route: 040
     Dates: start: 20211122, end: 20211122
  35. ISATUXIMAB [Suspect]
     Active Substance: ISATUXIMAB
     Dosage: 680 MG, D15
     Route: 065
     Dates: start: 20220111, end: 20220111
  36. ISATUXIMAB [Suspect]
     Active Substance: ISATUXIMAB
     Dosage: 680 MG, OTHER
     Route: 040
     Dates: start: 20220712, end: 20220727
  37. ISATUXIMAB [Suspect]
     Active Substance: ISATUXIMAB
     Dosage: 680 MG, BIW
     Route: 040
     Dates: start: 20220419, end: 20220503
  38. ISATUXIMAB [Suspect]
     Active Substance: ISATUXIMAB
     Dosage: 680 MG, OTHER
     Route: 040
     Dates: start: 20211220, end: 20211221
  39. ISATUXIMAB [Suspect]
     Active Substance: ISATUXIMAB
     Dosage: 680 MG, OTHER
     Route: 040
     Dates: start: 20220809, end: 20220824
  40. ISATUXIMAB [Suspect]
     Active Substance: ISATUXIMAB
     Dosage: 680 MG, OTHER
     Route: 040
     Dates: start: 20220614, end: 20220629
  41. ISATUXIMAB [Suspect]
     Active Substance: ISATUXIMAB
     Dosage: 680 MG, QW
     Route: 040
     Dates: end: 20211213
  42. ISATUXIMAB [Suspect]
     Active Substance: ISATUXIMAB
     Dosage: 680 MG, OTHER
     Route: 040
     Dates: start: 20220322, end: 20220406
  43. ISATUXIMAB [Suspect]
     Active Substance: ISATUXIMAB
     Dosage: 680 MG, OTHER
     Route: 040
     Dates: start: 20220419, end: 20220504
  44. ISATUXIMAB [Suspect]
     Active Substance: ISATUXIMAB
     Dosage: 680 MG, BIW
     Route: 040
     Dates: start: 20220712, end: 20220726
  45. ISATUXIMAB [Suspect]
     Active Substance: ISATUXIMAB
     Dosage: 1360 MG, QW, (680 MG, BIW)
     Route: 040
     Dates: start: 20220712, end: 20220726
  46. ISATUXIMAB [Suspect]
     Active Substance: ISATUXIMAB
     Dosage: 20 MG, (D8, D9, D15, D16, D22)
     Route: 065
     Dates: start: 20220104, end: 20220118
  47. ISATUXIMAB [Suspect]
     Active Substance: ISATUXIMAB
     Dosage: 20 MG, (D1, D2, D8, D16, D15, D22, D9)
     Route: 065
     Dates: start: 20211129, end: 20211214
  48. POMALYST [Suspect]
     Active Substance: POMALIDOMIDE
     Indication: Product used for unknown indication
     Dosage: UNK
     Route: 065
  49. POMALYST [Suspect]
     Active Substance: POMALIDOMIDE
     Dosage: UNK
     Route: 065
  50. PANTOPRAZOLE SODIUM [Concomitant]
     Active Substance: PANTOPRAZOLE SODIUM
     Indication: Gastritis prophylaxis
     Dosage: UNK
     Dates: start: 20201026
  51. PAMIDRONATE [Concomitant]
     Active Substance: PAMIDRONATE DISODIUM
     Indication: Osteolysis
     Dosage: UNK
     Route: 065
     Dates: start: 20170815
  52. ACYCLOVIR [Concomitant]
     Active Substance: ACYCLOVIR
     Indication: Infection prophylaxis
     Dosage: UNK
     Route: 065
     Dates: start: 20170911
  53. METAMIZOLE [Concomitant]
     Active Substance: METAMIZOLE
     Indication: Bone pain
     Dosage: UNK
     Route: 065
     Dates: start: 20170815
  54. PREGABALIN [Concomitant]
     Active Substance: PREGABALIN
     Indication: Bone pain
     Dosage: UNK
     Route: 065
     Dates: start: 20170911
  55. FOLIC ACID [Concomitant]
     Active Substance: FOLIC ACID
     Indication: Anaemia
     Dosage: UNK
     Route: 065
     Dates: start: 20221006
  56. FOLIC ACID [Concomitant]
     Active Substance: FOLIC ACID
     Indication: Product used for unknown indication
  57. POLYETHYLENE GLYCOLS [Concomitant]
     Active Substance: POLYETHYLENE GLYCOLS
     Indication: Constipation
     Dosage: UNK UNK, PRN
     Route: 065
     Dates: start: 2017
  58. MEROPENEM [Concomitant]
     Active Substance: MEROPENEM
     Indication: Polyneuropathy
     Dosage: UNK
     Route: 065
     Dates: start: 202210, end: 20221206
  59. MEROPENEM [Concomitant]
     Active Substance: MEROPENEM
     Indication: Pancytopenia
  60. HUMAN RED BLOOD CELL [Concomitant]
     Active Substance: HUMAN RED BLOOD CELL
     Indication: Anaemia
     Dosage: UNK
     Route: 065
     Dates: start: 20210927
  61. HUMAN RED BLOOD CELL [Concomitant]
     Active Substance: HUMAN RED BLOOD CELL
     Indication: Pancytopenia
     Dosage: UNK
     Route: 065
     Dates: start: 202210, end: 202210
  62. HUMAN RED BLOOD CELL [Concomitant]
     Active Substance: HUMAN RED BLOOD CELL
     Dosage: UNK
     Route: 065
     Dates: start: 20220926, end: 20220926
  63. SULFAMETHOXAZOLE\TRIMETHOPRIM [Concomitant]
     Active Substance: SULFAMETHOXAZOLE\TRIMETHOPRIM
     Indication: Infection prophylaxis
     Dosage: UNK
     Route: 065
     Dates: start: 20170911
  64. TAMSULOSIN [Concomitant]
     Active Substance: TAMSULOSIN
     Indication: Benign prostatic hyperplasia
     Dosage: UNK
     Route: 065
     Dates: start: 2005
  65. TAMSULOSIN [Concomitant]
     Active Substance: TAMSULOSIN
     Indication: Benign prostatic hyperplasia
  66. HYDROMORPHONE [Concomitant]
     Active Substance: HYDROMORPHONE
     Indication: Bone pain
     Dosage: UNK
     Dates: start: 20170815
  67. VITAMIN B12 [Concomitant]
     Active Substance: CYANOCOBALAMIN
     Indication: Anaemia
     Dosage: UNK
     Route: 065
     Dates: start: 20221006
  68. VITAMIN B12 [Concomitant]
     Active Substance: CYANOCOBALAMIN
     Indication: Product used for unknown indication
  69. CLEMASTINE [Concomitant]
     Active Substance: CLEMASTINE
     Indication: Allergy prophylaxis
     Dosage: UNK
     Route: 065
     Dates: start: 20211122, end: 20220906
  70. CLEMASTINE [Concomitant]
     Active Substance: CLEMASTINE
     Dosage: UNK
     Route: 065
  71. MONTELUKAST [Concomitant]
     Active Substance: MONTELUKAST
     Indication: Rhinitis allergic
     Dosage: UNK
     Route: 065
     Dates: start: 20211025
  72. PLATELETS [Concomitant]
     Active Substance: HUMAN PLATELET, ALLOGENIC
     Indication: Thrombocytopenia
     Dosage: UNK
     Route: 065
     Dates: start: 20221004, end: 20221004
  73. PLATELETS [Concomitant]
     Active Substance: HUMAN PLATELET, ALLOGENIC
     Dosage: UNK
     Route: 065
     Dates: start: 20210601
  74. PLATELETS [Concomitant]
     Active Substance: HUMAN PLATELET, ALLOGENIC
     Dosage: UNK
     Route: 065
     Dates: start: 20211108, end: 20211108
  75. ACETAMINOPHEN [Concomitant]
     Active Substance: ACETAMINOPHEN
     Indication: Pyrexia
     Dosage: UNK
     Route: 065
     Dates: start: 20211122, end: 20220906
  76. ACETAMINOPHEN [Concomitant]
     Active Substance: ACETAMINOPHEN
     Indication: Pyrexia
     Dosage: UNK
     Route: 065
  77. ACETAMINOPHEN [Concomitant]
     Active Substance: ACETAMINOPHEN
     Dosage: UNK
     Route: 065
  78. ALIZAPRIDE [Concomitant]
     Active Substance: ALIZAPRIDE
     Indication: Nausea
     Dosage: UNK
     Route: 065
     Dates: start: 20211102
  79. Kalinor [Concomitant]
     Indication: Hypokalaemia
     Dosage: UNK
     Route: 065
  80. Kalinor [Concomitant]
     Dosage: UNK
     Route: 065
  81. HYDROMORPHONE HYDROCHLORIDE [Concomitant]
     Active Substance: HYDROMORPHONE HYDROCHLORIDE
     Indication: Bone pain
     Dosage: UNK
     Route: 065
     Dates: start: 20170815
  82. PANTOPRAZOLE [Concomitant]
     Active Substance: PANTOPRAZOLE
     Indication: Gastritis prophylaxis
     Dosage: UNK
     Route: 065
     Dates: start: 20201026
  83. PAMIDRONAT GRY [Concomitant]
     Indication: Osteolysis
     Dosage: UNK
     Route: 065
     Dates: start: 20170815

REACTIONS (22)
  - Neutropenia [Recovered/Resolved]
  - Neutropenia [Recovered/Resolved]
  - Pyrexia [Recovered/Resolved]
  - Febrile neutropenia [Recovered/Resolved]
  - Febrile neutropenia [Recovered/Resolved]
  - Febrile neutropenia [Recovered/Resolved]
  - Neutropenia [Recovered/Resolved]
  - Neutropenia [Recovered/Resolved]
  - Haematochezia [Recovered/Resolved]
  - Haematochezia [Recovered/Resolved]
  - Plasma cell leukaemia [Not Recovered/Not Resolved]
  - Vomiting [Recovered/Resolved]
  - Heart rate increased [Recovered/Resolved]
  - Cough [Recovered/Resolved]
  - General physical health deterioration [Recovered/Resolved]
  - Oedema mucosal [Recovered/Resolved]
  - Pulpitis dental [Unknown]
  - Pulpitis dental [Recovered/Resolved]
  - Neutropenia [Recovered/Resolved]
  - Febrile neutropenia [Recovered/Resolved]
  - Cough [Recovering/Resolving]
  - Tachycardia [Recovered/Resolved]

NARRATIVE: CASE EVENT DATE: 20211103
